FAERS Safety Report 9466259 (Version 2)
Quarter: 2013Q3

REPORT INFORMATION
  Report Type: Spontaneous
  Country: JP (occurrence: JP)
  Receive Date: 20130820
  Receipt Date: 20130827
  Transmission Date: 20140515
  Serious: Yes (Other)
  Sender: FDA-Public Use
  Company Number: JP-PFIZER INC-2013239119

PATIENT
  Age: 73 Year
  Sex: Male

DRUGS (2)
  1. CADUET [Suspect]
     Indication: DYSLIPIDAEMIA
     Dosage: 1 DF, DAILY
     Route: 048
     Dates: start: 201203
  2. HERBESSER R [Concomitant]
     Indication: HYPERTENSION
     Dosage: 100 MG, DAILY
     Route: 048
     Dates: start: 201009

REACTIONS (3)
  - Erythema [Unknown]
  - Skin fissures [Unknown]
  - Skin haemorrhage [Unknown]
